FAERS Safety Report 9870222 (Version 1)
Quarter: 2014Q1

REPORT INFORMATION
  Report Type: Spontaneous
  Country: US (occurrence: None)
  Receive Date: 20140131
  Receipt Date: 20140131
  Transmission Date: 20141002
  Serious: Yes (Hospitalization)
  Sender: FDA-Public Use
  Company Number: AUR-APL-2014-00699

PATIENT
  Age: 55 Year
  Sex: Male

DRUGS (13)
  1. GABAPENTIN [Suspect]
     Indication: NEURALGIA
     Dosage: STOPPED
  2. CLOPIDOGREL (CLOPIDOGREL) [Concomitant]
  3. AMLODIPINE (AMLODIPINE) [Concomitant]
  4. HYDRALAZINE (HYDRALAZINE) [Concomitant]
  5. METOPROLOL (METOPROLOL) [Concomitant]
  6. CLONIDINE (CLONIDINE) [Concomitant]
  7. ATORVASTATIN (ATORVASTATIN) [Concomitant]
  8. OXYCODONE (OXYCODONE) [Concomitant]
  9. HYDROMORPHONE (HYDROMORPHONE) [Concomitant]
  10. SEVELAMER (SEVELAMER) [Concomitant]
  11. LANTHANUM (LANTHANUM CARBONATE) [Concomitant]
  12. EPOETIN (EPOETIN ALFA) [Concomitant]
  13. INSULIN GLARGINE (INSULIN GLARGINE) [Concomitant]

REACTIONS (11)
  - Tremor [None]
  - Mental status changes [None]
  - Hypotension [None]
  - Localised infection [None]
  - Condition aggravated [None]
  - Confusional state [None]
  - Myoclonus [None]
  - Renal impairment [None]
  - Dialysis [None]
  - Toxicity to various agents [None]
  - Lethargy [None]
